FAERS Safety Report 11359584 (Version 1)
Quarter: 2015Q3

REPORT INFORMATION
  Report Type: Spontaneous
  Country: US (occurrence: None)
  Receive Date: 20150722
  Receipt Date: 20150722
  Transmission Date: 20151125
  Serious: Yes (Hospitalization, Disabling)
  Sender: FDA-Public Use
  Company Number: 1713747-2015-999155

PATIENT
  Age: 72 Year
  Sex: Female

DRUGS (13)
  1. DIALYVITE [Concomitant]
     Active Substance: ASCORBIC ACID\BIOTIN\CALCIUM PANTOTHENATE\COBALAMIN\FOLIC ACID\NIACINAMIDE\PYRIDOXINE HYDROCHLORIDE\RIBOFLAVIN\THIAMINE MONONITRATE
  2. RENVELA [Concomitant]
     Active Substance: SEVELAMER CARBONATE
  3. LEVOTHYROXIME [Concomitant]
  4. OMEPRAZOLE. [Concomitant]
     Active Substance: OMEPRAZOLE
  5. LIBERTY CYCLER SET [Concomitant]
     Active Substance: DEVICE
  6. EPOGEN [Concomitant]
     Active Substance: ERYTHROPOIETIN
  7. METOPROLOL SUCCINATE. [Concomitant]
     Active Substance: METOPROLOL SUCCINATE
  8. CAPTOPRIL. [Concomitant]
     Active Substance: CAPTOPRIL
  9. DELFLEX [Suspect]
     Active Substance: CALCIUM CHLORIDE\DEXTROSE MONOHYDRATE\MAGNESIUM CHLORIDE\SODIUM CHLORIDE\SODIUM LACTATE
     Indication: RENAL DISORDER
     Dosage: PERITONEAL DIALYSIS
  10. DILTIAZEM [Concomitant]
     Active Substance: DILTIAZEM
  11. LIBERTY CYCLER [Concomitant]
     Active Substance: DEVICE
  12. CALCITRIOL. [Concomitant]
     Active Substance: CALCITRIOL
  13. FERROUS SULFATE [Concomitant]
     Active Substance: FERROUS SULFATE\FERROUS SULFATE, DRIED

REACTIONS (1)
  - Peritonitis [None]

NARRATIVE: CASE EVENT DATE: 20150421
